FAERS Safety Report 7521173-8 (Version None)
Quarter: 2011Q2

REPORT INFORMATION
  Report Type: 
  Country: None (occurrence: None)
  Receive Date: 20110524
  Receipt Date: 20110511
  Transmission Date: 20111010
  Serious: Yes (Death)
  Sender: FDA-Public Use
  Company Number: JPI-P-014782

PATIENT
  Age: 64 Year
  Sex: Female

DRUGS (2)
  1. XYREM [Suspect]
     Indication: PRODUCT USED FOR UNKNOWN INDICATION
     Dosage: 45GM (2.25 GM, 2 IN  1 D),ORAL, 6 GM (3 GM,2 IN 1 D),ORAL
     Route: 048
     Dates: start: 20030325, end: 20030101
  2. XYREM [Suspect]
     Indication: PRODUCT USED FOR UNKNOWN INDICATION
     Dosage: 45GM (2.25 GM, 2 IN  1 D),ORAL, 6 GM (3 GM,2 IN 1 D),ORAL
     Route: 048
     Dates: start: 20030519, end: 20060321

REACTIONS (1)
  - DEATH [None]
